FAERS Safety Report 6275049-7 (Version None)
Quarter: 2009Q3

REPORT INFORMATION
  Report Type: 
  Country: None (occurrence: None)
  Receive Date: 20090717
  Receipt Date: 20090708
  Transmission Date: 20100115
  Serious: Yes (Hospitalization)
  Sender: FDA-Public Use
  Company Number: MSTR-NO-0907S-0136

PATIENT
  Age: 45 Year
  Sex: Female

DRUGS (5)
  1. METASTRON [Suspect]
     Indication: METASTATIC PAIN
     Dosage: SINGLE DOSE, I.V.
     Route: 042
     Dates: start: 20080617, end: 20080617
  2. FLUOROURACIL [Concomitant]
  3. EPIRUBICIN [Concomitant]
  4. CYCLOPHOSPHAMIDE [Concomitant]
  5. ZOLEDRONIC ACID HYDRATE (ZOMETA) [Concomitant]

REACTIONS (11)
  - ANAEMIA [None]
  - BREAST CANCER FEMALE [None]
  - CONDITION AGGRAVATED [None]
  - EATING DISORDER [None]
  - HOT FLUSH [None]
  - HYPOAESTHESIA [None]
  - MALIGNANT NEOPLASM PROGRESSION [None]
  - NAUSEA [None]
  - PAIN [None]
  - SPINAL CORD COMPRESSION [None]
  - WHITE BLOOD CELL COUNT DECREASED [None]
